FAERS Safety Report 7899172-6 (Version None)
Quarter: 2011Q4

REPORT INFORMATION
  Report Type: 
  Country: None (occurrence: None)
  Receive Date: 20111107
  Receipt Date: 20110916
  Transmission Date: 20120403
  Serious: No
  Sender: FDA-Public Use
  Company Number: US-AMGEN-USASP2011048027

PATIENT
  Sex: Female

DRUGS (17)
  1. METOPROLOL [Concomitant]
  2. METHOTREXATE [Concomitant]
  3. MIRAPEX [Concomitant]
  4. ENBREL [Suspect]
     Indication: ANKYLOSING SPONDYLITIS
  5. VALIUM [Concomitant]
  6. VITAMIN D [Concomitant]
  7. FOLIC ACID [Concomitant]
  8. DIAZIDE                            /00007602/ [Concomitant]
  9. OXYCODONE HCL [Concomitant]
  10. DIOVAN [Concomitant]
  11. CYMBALTA [Concomitant]
  12. CALCIUM [Concomitant]
  13. COMBIVENT [Concomitant]
  14. SYNTHROID [Concomitant]
  15. ENBREL [Suspect]
     Indication: RHEUMATOID ARTHRITIS
     Dosage: 50 MG, QWK
     Dates: start: 20070101
  16. SOMA [Concomitant]
  17. ABILIFY [Concomitant]

REACTIONS (1)
  - RHEUMATOID ARTHRITIS [None]
